FAERS Safety Report 23998988 (Version 1)
Quarter: 2024Q2

REPORT INFORMATION
  Report Type: Spontaneous
  Country: US (occurrence: US)
  Receive Date: 20240621
  Receipt Date: 20240621
  Transmission Date: 20240716
  Serious: No
  Sender: FDA-Public Use
  Company Number: US-ARDELYX-2024ARDX002023

PATIENT
  Age: 67 Year
  Sex: Female

DRUGS (4)
  1. IBSRELA [Suspect]
     Active Substance: TENAPANOR HYDROCHLORIDE
     Indication: Constipation
     Dosage: 50 MILLIGRAM, BID
     Route: 048
  2. UBRELVY [Concomitant]
     Active Substance: UBROGEPANT
     Indication: Migraine
  3. PROPRANOLOL [Concomitant]
     Active Substance: PROPRANOLOL HYDROCHLORIDE
     Indication: Migraine
     Dosage: UNK, QD
  4. AMITRIPTYLINE [Concomitant]
     Active Substance: AMITRIPTYLINE
     Indication: Migraine
     Dosage: UNK, QD

REACTIONS (2)
  - Abdominal pain upper [Unknown]
  - Off label use [Unknown]
